FAERS Safety Report 25482313 (Version 3)
Quarter: 2025Q3

REPORT INFORMATION
  Report Type: Spontaneous
  Country: US (occurrence: US)
  Receive Date: 20250626
  Receipt Date: 20250911
  Transmission Date: 20251020
  Serious: No
  Sender: LUPIN
  Company Number: US-LUPIN PHARMACEUTICALS INC.-2025-05384

PATIENT
  Age: 31 Year
  Weight: 52.154 kg

DRUGS (2)
  1. KAITLIB FE [Suspect]
     Active Substance: ETHINYL ESTRADIOL\NORETHINDRONE
     Indication: Contraception
     Dosage: UNK UNK, QD
  2. KAITLIB FE [Suspect]
     Active Substance: ETHINYL ESTRADIOL\NORETHINDRONE
     Dosage: UNK UNK, QD

REACTIONS (2)
  - Skin burning sensation [Recovered/Resolved]
  - Headache [Not Recovered/Not Resolved]
